FAERS Safety Report 5731892-1 (Version None)
Quarter: 2008Q2

REPORT INFORMATION
  Report Type: 
  Country: None (occurrence: None)
  Receive Date: 20080508
  Receipt Date: 20080508
  Transmission Date: 20081010
  Serious: Yes (Life-Threatening, Hospitalization, Disabling)
  Sender: FDA-Public Use
  Company Number: None

PATIENT
  Sex: Female
  Weight: 113.3993 kg

DRUGS (1)
  1. HEPARIN [Suspect]
     Indication: ARTERIAL THROMBOSIS
     Dosage: CONTINUOUS I.V.
     Route: 042
     Dates: start: 20061217, end: 20061224

REACTIONS (1)
  - WHITE CLOT SYNDROME [None]
